FAERS Safety Report 6145870-4 (Version None)
Quarter: 2009Q2

REPORT INFORMATION
  Report Type: 
  Country: None (occurrence: None)
  Receive Date: 20090403
  Receipt Date: 20090320
  Transmission Date: 20091009
  Serious: Yes (Death, Life-Threatening, Hospitalization, Other)
  Sender: FDA-Public Use
  Company Number: 2009BM000050

PATIENT
  Age: 10 Year
  Sex: Female
  Weight: 17.4 kg

DRUGS (6)
  1. NAGLAZYME [Suspect]
     Indication: MUCOPOLYSACCHARIDOSIS VI
     Dosage: 15 MG; QW; IVDRP
     Route: 041
     Dates: start: 20081103, end: 20090202
  2. LOSARTAN (CON.) [Concomitant]
  3. FUROSEMIDE (CON.) [Concomitant]
  4. SPIRONOLACTONE (CON.) [Concomitant]
  5. PARACETAMOL (CON.) [Concomitant]
  6. DEXCHLORPHENIRAMINE (CON.) [Concomitant]

REACTIONS (4)
  - ASTHMATIC CRISIS [None]
  - BRONCHOPNEUMONIA [None]
  - CARDIAC DISORDER [None]
  - RESPIRATORY FAILURE [None]
